FAERS Safety Report 8819342 (Version 1)
Quarter: 2012Q4

REPORT INFORMATION
  Report Type: 
  Country: US (occurrence: US)
  Receive Date: 20121001
  Receipt Date: 20121001
  Transmission Date: 20130627
  Serious: Yes (Hospitalization)
  Sender: FDA-Public Use
  Company Number: US-BAYER-2012-100511

PATIENT
  Age: 37 Year
  Sex: Female
  Weight: 78.91 kg

DRUGS (4)
  1. YASMIN [Suspect]
  2. ATENOLOL [Concomitant]
     Dosage: 10 milligrams in the morning and 20 milligrams every evening
  3. LEXAPRO [Concomitant]
     Dosage: 10 mg, every day.
  4. TYLENOL #3 [Concomitant]

REACTIONS (2)
  - Pulmonary embolism [None]
  - Deep vein thrombosis [None]
